FAERS Safety Report 6038148-0 (Version None)
Quarter: 2009Q1

REPORT INFORMATION
  Report Type: 
  Country: None (occurrence: None)
  Receive Date: 20090115
  Receipt Date: 20090106
  Transmission Date: 20090719
  Serious: Yes (Other)
  Sender: FDA-Public Use
  Company Number: IT-CELGENEUS-083-20785-09010285

PATIENT
  Age: 4 Month
  Sex: Female

DRUGS (4)
  1. THALOMID [Suspect]
     Route: 048
  2. PREDNISONE TAB [Suspect]
  3. INFLIXIMAB [Suspect]
     Route: 051
  4. METHOTREXATE [Suspect]
     Route: 065

REACTIONS (3)
  - ENTEROCOLITIS HAEMORRHAGIC [None]
  - GRANULOMA [None]
  - HYPERCORTICOIDISM [None]
